FAERS Safety Report 5032228-4 (Version None)
Quarter: 2006Q2

REPORT INFORMATION
  Report Type: 
  Country: None (occurrence: None)
  Receive Date: 20060619
  Receipt Date: 20060606
  Transmission Date: 20061013
  Serious: Yes (Other)
  Sender: FDA-Public Use
  Company Number: HQWYE530224MAR06

PATIENT
  Age: 65 Year
  Sex: Male

DRUGS (2)
  1. MYLOTARG [Suspect]
     Indication: ACUTE MYELOID LEUKAEMIA
     Dosage: INTRAVENOUS
     Route: 042
     Dates: start: 20050409, end: 20050409
  2. MYLOTARG [Suspect]
     Indication: ACUTE MYELOID LEUKAEMIA
     Dosage: INTRAVENOUS
     Route: 042
     Dates: start: 20050419, end: 20050419

REACTIONS (5)
  - CHILLS [None]
  - CHROMATURIA [None]
  - HYPERTENSION [None]
  - NAUSEA [None]
  - PYREXIA [None]
